FAERS Safety Report 11652933 (Version 1)
Quarter: 2015Q4

REPORT INFORMATION
  Report Type: Spontaneous
  Country: US (occurrence: None)
  Receive Date: 20151022
  Receipt Date: 20151022
  Transmission Date: 20160304
  Serious: Yes (Life-Threatening, Hospitalization, Other)
  Sender: FDA-Public Use
  Company Number: US-MDT-ADR-2015-01996

PATIENT
  Age: 59 Year
  Sex: Female

DRUGS (2)
  1. FENTANYL INTRATHECAL 5000 MCG/ML [Suspect]
     Active Substance: FENTANYL
     Indication: PAIN
     Dosage: 1998.6 MCG/DAY
  2. COMPOUNDED BACLOFEN INTRATHECAL300 MCG/ML [Suspect]
     Active Substance: BACLOFEN
     Indication: PAIN
     Dosage: 120 MCG/DAY

REACTIONS (4)
  - Dyspnoea [None]
  - Yellow skin [None]
  - Altered state of consciousness [None]
  - Drug withdrawal syndrome [None]
